FAERS Safety Report 20246964 (Version 1)
Quarter: 2021Q4

REPORT INFORMATION
  Report Type: Spontaneous
  Country: US (occurrence: None)
  Receive Date: 20211228
  Receipt Date: 20211228
  Transmission Date: 20220303
  Serious: Yes (Hospitalization)
  Sender: FDA-Public Use
  Company Number: None

PATIENT
  Sex: Male
  Weight: 70.2 kg

DRUGS (6)
  1. CYCLOPHOSPHAMIDE [Suspect]
     Active Substance: CYCLOPHOSPHAMIDE
  2. CYTARABINE [Concomitant]
  3. MERCAPTOPURINE [Concomitant]
     Active Substance: MERCAPTOPURINE
  4. METHOTREXATE [Suspect]
     Active Substance: METHOTREXATE
  5. PEG-L-ASPARAGINASE (PEGASPARGASE, ONCOSPAR [Concomitant]
  6. VINCRISTINE SULFATE [Concomitant]
     Active Substance: VINCRISTINE SULFATE

REACTIONS (6)
  - Hyperlipidaemia [None]
  - Abdominal pain upper [None]
  - Duodenitis [None]
  - Blood triglycerides increased [None]
  - Duodenal ulcer [None]
  - Neutropenia [None]

NARRATIVE: CASE EVENT DATE: 20211217
